FAERS Safety Report 5236891-4 (Version None)
Quarter: 2007Q1

REPORT INFORMATION
  Report Type: 
  Country: None (occurrence: None)
  Receive Date: 20070213
  Receipt Date: 20050615
  Transmission Date: 20070707
  Serious: Yes (Other)
  Sender: FDA-Public Use
  Company Number: GB-AVENTIS-200711108GDDC

PATIENT
  Age: 62 Year
  Sex: Female

DRUGS (1)
  1. METRONIDAZOLE [Suspect]
     Route: 048
     Dates: start: 20050520, end: 20050521

REACTIONS (2)
  - HAEMATURIA [None]
  - VASCULITIS [None]
